FAERS Safety Report 19109736 (Version 1)
Quarter: 2021Q2

REPORT INFORMATION
  Report Type: Spontaneous
  Country: US (occurrence: US)
  Receive Date: 20210409
  Receipt Date: 20210409
  Transmission Date: 20210717
  Serious: Yes (Death, Hospitalization, Other)
  Sender: FDA-Public Use
  Company Number: US-ABBVIE-16K-163-3033962-00

PATIENT
  Age: 72 Year
  Sex: Female

DRUGS (1)
  1. IMBRUVICA [Suspect]
     Active Substance: IBRUTINIB
     Indication: CHRONIC LYMPHOCYTIC LEUKAEMIA
     Route: 048
     Dates: start: 20140625, end: 20150103

REACTIONS (4)
  - Colitis ischaemic [Not Recovered/Not Resolved]
  - Ileus [Unknown]
  - Sepsis syndrome [Fatal]
  - Aspiration [Unknown]

NARRATIVE: CASE EVENT DATE: 20151229
